FAERS Safety Report 4413103-2 (Version None)
Quarter: 2004Q3

REPORT INFORMATION
  Report Type: 
  Country: None (occurrence: None)
  Receive Date: 20040802
  Receipt Date: 20040802
  Transmission Date: 20050211
  Serious: Yes (Other)
  Sender: FDA-Public Use
  Company Number: None

PATIENT
  Sex: Male
  Weight: 83.9154 kg

DRUGS (1)
  1. ZIPRASIDONE 80 MG PFIZER [Suspect]
     Indication: SCHIZOPHRENIA, PARANOID TYPE
     Dosage: 80 MG BID ORAL
     Route: 048
     Dates: start: 20040316, end: 20040320

REACTIONS (4)
  - DYSTONIA [None]
  - EMOTIONAL DISTRESS [None]
  - MUSCLE SPASMS [None]
  - TORTICOLLIS [None]
